FAERS Safety Report 5757856-X (Version None)
Quarter: 2008Q2

REPORT INFORMATION
  Report Type: 
  Country: None (occurrence: None)
  Receive Date: 20080603
  Receipt Date: 20080530
  Transmission Date: 20081010
  Serious: Yes (Life-Threatening, Hospitalization)
  Sender: FDA-Public Use
  Company Number: PHEH2008US03878

PATIENT
  Sex: Female
  Weight: 55 kg

DRUGS (15)
  1. RECLAST [Suspect]
     Indication: OSTEOPOROSIS
     Dosage: UNK
     Dates: start: 20080409
  2. CALCIUM CITRATE [Suspect]
     Dosage: 1200 UNK, QD
     Route: 048
  3. TRIAMTERENE AND HYDROCHLOROTHIAZID ^HARRIS^ [Concomitant]
     Dosage: 37/25, QD
     Route: 048
  4. REMERON [Concomitant]
     Dosage: 7.5 MG, QD
     Route: 048
  5. MOBIC [Concomitant]
     Dosage: 7.5 MG, QD
     Route: 048
  6. ZANAFLEX [Concomitant]
     Dosage: 2 MG, BID
     Route: 048
  7. NITROFURANTOIN [Concomitant]
     Indication: URINARY TRACT INFECTION
     Dosage: 100 MG, BID
     Route: 048
  8. ENABLEX [Concomitant]
     Dosage: 7.5 MG, QHS
     Route: 048
  9. ADVIL [Concomitant]
     Dosage: 200 MG, QID
     Route: 048
  10. SPIRIVA [Concomitant]
     Dosage: 1 PUFF, QAM
  11. SPIRIVA [Concomitant]
     Dosage: 2 PUFFS, QD
  12. NASONEX [Concomitant]
     Dosage: 1 SPRAY IN EACH NARES, QD
  13. SINEMET [Concomitant]
     Dosage: 25/100,  UNK
     Route: 048
  14. AGGRENOX [Concomitant]
     Dosage: 200/25 MG, BID
     Route: 048
  15. VITAMIN CAP [Concomitant]
     Dosage: UNK
     Route: 048

REACTIONS (23)
  - ANAEMIA [None]
  - ASTHENIA [None]
  - BACK PAIN [None]
  - BLOOD CALCIUM INCREASED [None]
  - BLOOD CREATININE INCREASED [None]
  - BLOOD UREA INCREASED [None]
  - BONE PAIN [None]
  - CARDIAC MURMUR [None]
  - DECREASED APPETITE [None]
  - DIZZINESS [None]
  - ELECTROLYTE IMBALANCE [None]
  - FALL [None]
  - FATIGUE [None]
  - HYPERCALCAEMIA [None]
  - HYPOCALCAEMIA [None]
  - MITRAL VALVE INCOMPETENCE [None]
  - MUSCULOSKELETAL PAIN [None]
  - NEPHROTIC SYNDROME [None]
  - PAIN [None]
  - PYREXIA [None]
  - RENAL FAILURE ACUTE [None]
  - URINARY TRACT INFECTION PSEUDOMONAL [None]
  - WALKING AID USER [None]
